FAERS Safety Report 7948968-0 (Version None)
Quarter: 2011Q4

REPORT INFORMATION
  Report Type: 
  Country: None (occurrence: None)
  Receive Date: 20111130
  Receipt Date: 20111125
  Transmission Date: 20120403
  Serious: Yes (Death, Other)
  Sender: FDA-Public Use
  Company Number: JP-PFIZER INC-2011288659

PATIENT
  Sex: Male

DRUGS (1)
  1. LYRICA [Suspect]
     Dosage: 150 MG/DAY
     Route: 048
     Dates: start: 20111118

REACTIONS (2)
  - INTERSTITIAL LUNG DISEASE [None]
  - DYSPNOEA [None]
